FAERS Safety Report 6097315-0 (Version None)
Quarter: 2009Q1

REPORT INFORMATION
  Report Type: 
  Country: None (occurrence: None)
  Receive Date: 20090226
  Receipt Date: 20090226
  Transmission Date: 20090719
  Serious: No
  Sender: FDA-Public Use
  Company Number: None

PATIENT
  Age: 48 Year
  Sex: Female
  Weight: 61.2356 kg

DRUGS (2)
  1. CYMBALTA [Suspect]
     Indication: DEPRESSION
     Dosage: 30MG DAILY PO
     Route: 048
     Dates: start: 20090214, end: 20090220
  2. CYMBALTA [Suspect]
     Indication: FIBROMYALGIA
     Dosage: 30MG DAILY PO
     Route: 048
     Dates: start: 20090214, end: 20090220

REACTIONS (10)
  - CONSTIPATION [None]
  - DRY MOUTH [None]
  - DYSPEPSIA [None]
  - MYALGIA [None]
  - NAUSEA [None]
  - OROPHARYNGEAL PAIN [None]
  - PHARYNGEAL OEDEMA [None]
  - PYREXIA [None]
  - SKIN EXFOLIATION [None]
  - VOMITING [None]
